FAERS Safety Report 9323045 (Version 1)
Quarter: 2013Q2

REPORT INFORMATION
  Report Type: Spontaneous
  Country: GB (occurrence: GB)
  Receive Date: 20130603
  Receipt Date: 20130603
  Transmission Date: 20140414
  Serious: Yes (Other)
  Sender: FDA-Public Use
  Company Number: GB-B.I. PHARMACEUTICALS,INC./RIDGEFIELD-2013-UK-01166UK

PATIENT
  Age: 78 Year
  Sex: Female
  Weight: 65 kg

DRUGS (10)
  1. PRADAXA [Suspect]
     Indication: HEART RATE ABNORMAL
     Dosage: 300 MG
     Route: 048
     Dates: start: 20130313, end: 20130315
  2. ANGITIL SR [Concomitant]
     Dosage: 180 MG
     Route: 048
     Dates: start: 201207
  3. ASPIRIN [Concomitant]
     Dosage: 75 MG
     Route: 048
     Dates: start: 201207
  4. BENDROFLUMETHIAZIDE [Concomitant]
     Dosage: 2.5 MG
     Route: 048
  5. IRBESARTAN [Concomitant]
     Dosage: 75 MG
     Route: 048
  6. PREDNISOLONE [Concomitant]
     Dosage: 30 MG
     Route: 048
  7. SALBUTAMOL [Concomitant]
     Route: 055
  8. SERETIDE [Concomitant]
     Dates: start: 200912
  9. SYTRON [Concomitant]
     Route: 048
     Dates: start: 1983
  10. TIOTROPIUM [Concomitant]
     Route: 055
     Dates: start: 200912

REACTIONS (4)
  - Diarrhoea [Recovered/Resolved]
  - Headache [Recovered/Resolved]
  - Epistaxis [Recovered/Resolved]
  - Malaise [Recovered/Resolved]
